FAERS Safety Report 11826491 (Version 1)
Quarter: 2015Q4

REPORT INFORMATION
  Report Type: Spontaneous
  Country: US (occurrence: None)
  Receive Date: 20151210
  Receipt Date: 20151210
  Transmission Date: 20160305
  Serious: Yes (Other)
  Sender: FDA-Public Use
  Company Number: None

PATIENT
  Age: 47 Year
  Sex: Female

DRUGS (1)
  1. HUMIRA [Suspect]
     Active Substance: ADALIMUMAB
     Indication: PSORIASIS
     Dosage: EVERY 2 WEEKS
     Route: 058
     Dates: start: 20151028

REACTIONS (6)
  - Psoriasis [None]
  - Pain [None]
  - Blood glucose increased [None]
  - Disease recurrence [None]
  - Chromaturia [None]
  - Blood urine present [None]

NARRATIVE: CASE EVENT DATE: 20151109
